FAERS Safety Report 10166019 (Version 1)
Quarter: 2014Q2

REPORT INFORMATION
  Report Type: Spontaneous
  Country: US (occurrence: US)
  Receive Date: 20140511
  Receipt Date: 20140511
  Transmission Date: 20141212
  Serious: No
  Sender: FDA-Public Use
  Company Number: US-009507513-1404USA014664

PATIENT
  Sex: Female

DRUGS (3)
  1. DULERA [Suspect]
     Indication: ASTHMA
     Dosage: 2 DF, BID
     Route: 055
     Dates: start: 201311
  2. QVAR [Concomitant]
     Dosage: 2 PUFFS, BID
  3. ZENAPAX [Concomitant]
     Indication: ASTHMA
     Dosage: UNK, AS NEED

REACTIONS (3)
  - Asthma [Unknown]
  - Drug dose omission [Unknown]
  - Product quality issue [Unknown]
